FAERS Safety Report 11026554 (Version 1)
Quarter: 2015Q2

REPORT INFORMATION
  Report Type: Report from Study
  Country: GR (occurrence: GR)
  Receive Date: 20150414
  Receipt Date: 20150414
  Transmission Date: 20150821
  Serious: Yes (Other)
  Sender: FDA-Public Use
  Company Number: PHHY2015GR040577

PATIENT
  Age: 71 Year
  Sex: Female

DRUGS (7)
  1. L DOPA [Suspect]
     Active Substance: LEVODOPA
     Dosage: 1/4X4,
     Route: 065
  2. EXELON [Suspect]
     Active Substance: RIVASTIGMINE TARTRATE
     Indication: DEMENTIA WITH LEWY BODIES
     Dosage: 4.6 MG, UNK
     Route: 062
  3. L DOPA [Suspect]
     Active Substance: LEVODOPA
     Indication: PRODUCT USED FOR UNKNOWN INDICATION
     Dosage: 1/4, TID
     Route: 065
  4. EXELON [Suspect]
     Active Substance: RIVASTIGMINE TARTRATE
     Dosage: 9.5 MG, UNK
     Route: 062
  5. EXELON [Suspect]
     Active Substance: RIVASTIGMINE TARTRATE
     Dosage: 13.3 MG, UNK
     Route: 062
  6. L DOPA [Suspect]
     Active Substance: LEVODOPA
     Dosage: 1/4X4
     Route: 065
  7. L DOPA [Suspect]
     Active Substance: LEVODOPA
     Dosage: HALF QUATER
     Route: 065

REACTIONS (4)
  - Illusion [Unknown]
  - Aggression [Recovering/Resolving]
  - Dementia [Unknown]
  - Cognitive disorder [Recovering/Resolving]
